FAERS Safety Report 9408833 (Version 2)
Quarter: 2014Q1

REPORT INFORMATION
  Report Type: Spontaneous
  Country: US (occurrence: US)
  Receive Date: 20130719
  Receipt Date: 20140127
  Transmission Date: 20141002
  Serious: Yes (Hospitalization, Other)
  Sender: FDA-Public Use
  Company Number: US-009507513-1307USA009518

PATIENT
  Age: 82 Year
  Sex: Male
  Weight: 68.27 kg

DRUGS (9)
  1. JANUMET [Suspect]
     Indication: DIABETES MELLITUS
     Dosage: 1 TABLET, TWICE DAILY
     Route: 048
  2. PRILOSEC [Concomitant]
     Dosage: 20 MG, DAILY
     Route: 048
  3. ASPIRIN [Concomitant]
     Dosage: 325 MG, UNK
     Route: 048
  4. COZAAR [Concomitant]
     Dosage: 50 MG, EVERY DAY
  5. FINASTERIDE [Concomitant]
     Dosage: 5 MG, UNK
     Route: 048
  6. ZOCOR [Concomitant]
     Dosage: 20 MG, AT BEDTIME
     Route: 048
  7. METFORMIN [Concomitant]
     Dosage: 1000 MG, TWICE A DAY
     Route: 048
  8. CENTRUM CHEWABLE MULTIVITAMIN MULTIMINERAL SUPPLEMENT [Concomitant]
     Dosage: 1 EACH ORAL
     Route: 048
  9. OMEGA-3 MARINE TRIGLYCERIDES [Suspect]
     Dosage: 1 CAPSULE, UNK
     Route: 048

REACTIONS (1)
  - Pancreatitis acute [Recovered/Resolved]
